FAERS Safety Report 10174455 (Version 1)
Quarter: 2014Q2

REPORT INFORMATION
  Report Type: Spontaneous
  Country: US (occurrence: US)
  Receive Date: 20140515
  Receipt Date: 20140515
  Transmission Date: 20141212
  Serious: No
  Sender: FDA-Public Use
  Company Number: US-BAYER-2014-064758

PATIENT
  Age: 59 Year
  Sex: Female
  Weight: 94 kg

DRUGS (5)
  1. ALEVE CAPLET [Suspect]
     Indication: ARTHRITIS
  2. CARVEDILOL [Concomitant]
     Dosage: 3.125 MG, BID
  3. TYLENOL W/CODEINE NO. 3 [Concomitant]
     Dosage: UNK
  4. DIAZEPAM [Concomitant]
     Indication: ANXIETY
     Dosage: 5 MG, UNK
  5. OMEPRAZOLE [Concomitant]
     Indication: GASTRIC DISORDER
     Dosage: 20 MG, QD

REACTIONS (1)
  - Drug ineffective [None]
